FAERS Safety Report 4497913-1 (Version None)
Quarter: 2004Q4

REPORT INFORMATION
  Report Type: 
  Country: None (occurrence: None)
  Receive Date: 20041105
  Receipt Date: 20041028
  Transmission Date: 20050328
  Serious: Yes (Other)
  Sender: FDA-Public Use
  Company Number: 2004085427

PATIENT
  Age: 77 Year
  Sex: Male
  Weight: 85.2762 kg

DRUGS (4)
  1. TIKOSYN [Suspect]
     Indication: ATRIAL FIBRILLATION
     Dosage: 500 MCG (250 MCG, 2 IN 1 D), ORAL
     Route: 048
     Dates: start: 20040831
  2. ALL OTHER THERAPEUTICS PRODUCTS (ALL OTHER THERAPEUTIC PRODUCTS) [Concomitant]
  3. FELODIPINE [Concomitant]
  4. WARFARIN SODIUM [Concomitant]

REACTIONS (3)
  - HEART RATE INCREASED [None]
  - LUNG DISORDER [None]
  - MIGRAINE [None]
